FAERS Safety Report 25963142 (Version 1)
Quarter: 2025Q4

REPORT INFORMATION
  Report Type: Spontaneous
  Country: US (occurrence: US)
  Receive Date: 20251027
  Receipt Date: 20251027
  Transmission Date: 20260117
  Serious: Yes (Hospitalization)
  Sender: AMGEN
  Company Number: US-AMGEN-USASP2025208357

PATIENT
  Sex: Female
  Weight: 107.03 kg

DRUGS (26)
  1. XGEVA [Suspect]
     Active Substance: DENOSUMAB
     Indication: Product used for unknown indication
     Dosage: UNK
     Route: 065
  2. TREPROSTINIL [Suspect]
     Active Substance: TREPROSTINIL
     Indication: Pulmonary arterial hypertension
     Dosage: 2.5 MILLIGRAM PER MILLILITRE
     Route: 040
     Dates: start: 20240822
  3. VITAMINS [Concomitant]
     Active Substance: VITAMINS
     Route: 065
  4. FAMOTIDINE [Concomitant]
     Active Substance: FAMOTIDINE
     Route: 065
  5. KEPPRA [Concomitant]
     Active Substance: LEVETIRACETAM
     Route: 065
  6. FULVESTRANT [Concomitant]
     Active Substance: FULVESTRANT
     Route: 065
  7. ROSUVASTATIN CALCIUM [Concomitant]
     Active Substance: ROSUVASTATIN CALCIUM
     Route: 065
  8. TYLENOL EXTRA STRENGTH [Concomitant]
     Active Substance: ACETAMINOPHEN
     Route: 065
  9. TADALAFIL [Concomitant]
     Active Substance: TADALAFIL
     Route: 065
  10. BUMETANIDE [Concomitant]
     Active Substance: BUMETANIDE
     Route: 065
  11. IBRANCE [Concomitant]
     Active Substance: PALBOCICLIB
     Route: 065
  12. GABAPENTIN [Concomitant]
     Active Substance: GABAPENTIN
     Route: 065
  13. FLONASE ALLERGY RELIEF [Concomitant]
     Active Substance: FLUTICASONE PROPIONATE
     Route: 065
  14. WINREVAIR [Concomitant]
     Active Substance: SOTATERCEPT-CSRK
     Route: 065
  15. POTASSIUM CHLORIDE [Concomitant]
     Active Substance: POTASSIUM CHLORIDE
  16. BIOTIN [Concomitant]
     Active Substance: BIOTIN
     Route: 065
  17. CITRUCEL [Concomitant]
     Active Substance: METHYLCELLULOSE (4000 CPS)
     Route: 065
  18. SPIRONOLACTONE [Concomitant]
     Active Substance: SPIRONOLACTONE
     Indication: Blood phosphorus
     Route: 065
  19. ALPRAZOLAM [Concomitant]
     Active Substance: ALPRAZOLAM
     Route: 065
  20. VITAMIN D3 [Concomitant]
     Active Substance: CHOLECALCIFEROL
     Route: 065
  21. OXYGEN [Concomitant]
     Active Substance: OXYGEN
     Route: 065
  22. Oyster shell cacium with vitamin d [Concomitant]
     Route: 065
  23. ZYRTEC [Concomitant]
     Active Substance: CETIRIZINE HYDROCHLORIDE
     Route: 065
  24. SERTRALINE HYDROCHLORIDE [Concomitant]
     Active Substance: SERTRALINE HYDROCHLORIDE
     Route: 065
  25. MELATONIN [Concomitant]
     Active Substance: MELATONIN
     Route: 065
  26. FERROUS SULFATE [Concomitant]
     Active Substance: FERROUS SULFATE
     Route: 065

REACTIONS (1)
  - Complication associated with device [Unknown]
